FAERS Safety Report 8059817-7 (Version None)
Quarter: 2012Q1

REPORT INFORMATION
  Report Type: 
  Country: None (occurrence: None)
  Receive Date: 20120120
  Receipt Date: 20120111
  Transmission Date: 20120608
  Serious: Yes (Hospitalization, Other)
  Sender: FDA-Public Use
  Company Number: JP-CELGENEUS-163-CCAZA-11080136

PATIENT
  Sex: Male
  Weight: 56 kg

DRUGS (7)
  1. ALLOPURINOL [Concomitant]
     Route: 065
     Dates: start: 20110630, end: 20110730
  2. MAXIPIME [Concomitant]
     Indication: CLOSTRIDIUM BACTERAEMIA
     Route: 065
  3. RAMELTEON [Concomitant]
     Route: 065
     Dates: start: 20110711, end: 20110720
  4. VIDAZA [Suspect]
     Dosage: 75 MILLIGRAM/SQ. METER
     Route: 058
     Dates: start: 20110711, end: 20110720
  5. LANSOPRAZOLE [Concomitant]
     Route: 065
     Dates: start: 20110630, end: 20110730
  6. RED BLOOD CELLS TRANSFUSION [Concomitant]
     Indication: TRANSFUSION
     Route: 041
  7. PLATELETS TRANSFUSION [Concomitant]
     Indication: TRANSFUSION
     Route: 041

REACTIONS (2)
  - URINARY RETENTION [None]
  - ENTERITIS INFECTIOUS [None]
